FAERS Safety Report 6589738-8 (Version None)
Quarter: 2010Q1

REPORT INFORMATION
  Report Type: 
  Country: None (occurrence: None)
  Receive Date: 20100219
  Receipt Date: 20100205
  Transmission Date: 20100710
  Serious: Yes (Hospitalization)
  Sender: FDA-Public Use
  Company Number: PT-RANBAXY-2010RR-31089

PATIENT
  Age: 30 Year
  Sex: Female

DRUGS (15)
  1. SIMVASTATIN [Suspect]
     Dosage: 20 MG, QD
  2. AMOXICILINA + ACIDO CLAVULANICO RANBAXY 875 MG + 125 MG COMPRIMIDOS [Suspect]
     Dosage: UNK
     Route: 048
  3. IMIPENEM [Concomitant]
  4. PARACETAMOL [Concomitant]
  5. BICARBONATE [Concomitant]
  6. METHYLPREDNISOLONE [Concomitant]
     Dosage: 250 MG, UNK
     Route: 042
  7. PREDNISOLONE [Concomitant]
     Indication: SYSTEMIC LUPUS ERYTHEMATOSUS
     Dosage: 20 MG, QD
  8. PREDNISOLONE [Concomitant]
     Dosage: 60 MG, QD
     Route: 048
  9. CLEMASTINE FUMARATE [Concomitant]
     Route: 030
  10. AZATHIOPRINE [Concomitant]
     Indication: SYSTEMIC LUPUS ERYTHEMATOSUS
     Dosage: 50 MG, BID
  11. ENALAPRIL MALEATE [Concomitant]
     Dosage: 5 MG, QID
  12. MYCOPHENOLATE MOFETIL [Concomitant]
     Dosage: 1 G, BID
  13. FOLIC ACID [Concomitant]
     Dosage: 5 MG, QD
  14. CAPTOPRIL [Concomitant]
     Dosage: 50 MG, BID
  15. BETAMETHASONE [Concomitant]
     Route: 061

REACTIONS (5)
  - DRUG HYPERSENSITIVITY [None]
  - DRUG INTERACTION [None]
  - HEPATOTOXICITY [None]
  - RENAL FAILURE ACUTE [None]
  - RHABDOMYOLYSIS [None]
